FAERS Safety Report 10029680 (Version 1)
Quarter: 2014Q1

REPORT INFORMATION
  Report Type: Spontaneous
  Country: US (occurrence: None)
  Receive Date: 20140321
  Receipt Date: 20140321
  Transmission Date: 20141002
  Serious: Yes (Other)
  Sender: FDA-Public Use
  Company Number: None

PATIENT
  Age: 62 Year
  Sex: Female
  Weight: 67.13 kg

DRUGS (1)
  1. PREPOPIK [Suspect]
     Indication: COLONOSCOPY
     Dosage: 1 PACKET
     Route: 048
     Dates: start: 20140314, end: 20140314

REACTIONS (9)
  - Abdominal pain upper [None]
  - Nausea [None]
  - Dizziness [None]
  - Hyperhidrosis [None]
  - Muscle spasms [None]
  - Asthenia [None]
  - Rectal haemorrhage [None]
  - Dehydration [None]
  - Malaise [None]
